FAERS Safety Report 20154212 (Version 1)
Quarter: 2021Q4

REPORT INFORMATION
  Report Type: Spontaneous
  Country: US (occurrence: US)
  Receive Date: 20211207
  Receipt Date: 20211207
  Transmission Date: 20220303
  Serious: Yes (Other)
  Sender: FDA-Public Use
  Company Number: US-CELGENE-USA-20211200159

PATIENT
  Sex: Female
  Weight: 89.892 kg

DRUGS (2)
  1. REVLIMID [Suspect]
     Active Substance: LENALIDOMIDE
     Indication: Plasma cell myeloma
     Dosage: 15 MILLIGRAM
     Route: 048
     Dates: start: 20200110
  2. REVLIMID [Suspect]
     Active Substance: LENALIDOMIDE
     Dosage: 15 MILLIGRAM
     Route: 048
     Dates: start: 202011

REACTIONS (11)
  - Neuropathy peripheral [Unknown]
  - Blood glucose increased [Unknown]
  - Tooth fracture [Unknown]
  - Unevaluable event [Unknown]
  - Alopecia [Unknown]
  - Hair growth rate abnormal [Unknown]
  - Arthritis [Unknown]
  - Rhinorrhoea [Unknown]
  - Rash pruritic [Unknown]
  - Somnolence [Unknown]
  - Pain in extremity [Unknown]
